FAERS Safety Report 13478745 (Version 1)
Quarter: 2017Q2

REPORT INFORMATION
  Report Type: Spontaneous
  Country: US (occurrence: US)
  Receive Date: 20170425
  Receipt Date: 20170425
  Transmission Date: 20170830
  Serious: No
  Sender: FDA-Public Use
  Company Number: US-AMGEN-USASP2017058294

PATIENT
  Age: 73 Year
  Sex: Female

DRUGS (8)
  1. SUMATRIPTAN SUCCINATE. [Concomitant]
     Active Substance: SUMATRIPTAN SUCCINATE
  2. PARADIM [Concomitant]
  3. FLUXOTINE [Concomitant]
     Active Substance: FLUOXETINE HYDROCHLORIDE
  4. ASPIRINE 325 MG [Concomitant]
  5. TIMOLOL MALEATE. [Concomitant]
     Active Substance: TIMOLOL MALEATE
  6. ENBREL [Suspect]
     Active Substance: ETANERCEPT
     Indication: MIXED CONNECTIVE TISSUE DISEASE
     Dosage: 50 MG, QWK
     Route: 058
     Dates: start: 201702
  7. NORTRIPTYLINE [Concomitant]
     Active Substance: NORTRIPTYLINE
  8. TEMAZEPAM. [Concomitant]
     Active Substance: TEMAZEPAM

REACTIONS (4)
  - Nausea [Unknown]
  - Off label use [Unknown]
  - Headache [Unknown]
  - Rash [Unknown]

NARRATIVE: CASE EVENT DATE: 2017
